FAERS Safety Report 14977522 (Version 1)
Quarter: 2018Q2

REPORT INFORMATION
  Report Type: Spontaneous
  Country: US (occurrence: US)
  Receive Date: 20180606
  Receipt Date: 20180606
  Transmission Date: 20180711
  Serious: No
  Sender: FDA-Public Use
  Company Number: US-SUN PHARMACEUTICAL INDUSTRIES LTD-2018US-161078

PATIENT
  Sex: Male

DRUGS (4)
  1. OXYCODONE [Suspect]
     Active Substance: OXYCODONE
     Indication: FIBROMYALGIA
     Dosage: UNK
     Route: 065
  2. OXYCODONE [Suspect]
     Active Substance: OXYCODONE
     Indication: FIBROMYALGIA
     Dosage: 4 DF, DAILY
     Route: 065
     Dates: start: 2017
  3. OXYCODONE [Suspect]
     Active Substance: OXYCODONE
     Indication: RHEUMATOID ARTHRITIS
  4. OXYCODONE [Suspect]
     Active Substance: OXYCODONE
     Indication: RHEUMATOID ARTHRITIS

REACTIONS (5)
  - Constipation [Unknown]
  - Diarrhoea [Unknown]
  - Product quality issue [Unknown]
  - Product substitution issue [Unknown]
  - Product colour issue [Unknown]
